FAERS Safety Report 18852711 (Version 2)
Quarter: 2021Q1

REPORT INFORMATION
  Report Type: Spontaneous
  Country: US (occurrence: US)
  Receive Date: 20210205
  Receipt Date: 20210226
  Transmission Date: 20210420
  Serious: No
  Sender: FDA-Public Use
  Company Number: US-GLAXOSMITHKLINE-US2021019699

PATIENT
  Age: 73 Year
  Sex: Male

DRUGS (1)
  1. SEREVENT DISKUS [Suspect]
     Active Substance: SALMETEROL XINAFOATE
     Indication: PRODUCT USED FOR UNKNOWN INDICATION
     Dosage: UNK UNK, QOD, 500 MCG
     Route: 055

REACTIONS (8)
  - Upper respiratory tract irritation [Unknown]
  - Chest pain [Unknown]
  - Pulmonary pain [Unknown]
  - Chest discomfort [Unknown]
  - Cough [Unknown]
  - Product complaint [Unknown]
  - Product use issue [Unknown]
  - Sleep disorder [Unknown]

NARRATIVE: CASE EVENT DATE: 202101
